FAERS Safety Report 8411698-5 (Version None)
Quarter: 2012Q2

REPORT INFORMATION
  Report Type: 
  Country: None (occurrence: None)
  Receive Date: 20120605
  Receipt Date: 20120530
  Transmission Date: 20120825
  Serious: Yes (Hospitalization)
  Sender: FDA-Public Use
  Company Number: BR-PFIZER INC-2012075045

PATIENT
  Age: 51 Year
  Sex: Male

DRUGS (4)
  1. OLMESARTAN MEDOXOMIL [Concomitant]
     Dosage: 40 MG, IN THE MORNING
  2. APRESOLINE [Concomitant]
     Dosage: 50 MG, 2X/DAY (IN THE MORNING AND AT NIGHT)
  3. ATENOLOL [Concomitant]
     Dosage: 25 MG, 1X/DAY (AT NIGHT)
  4. SUTENT [Suspect]
     Indication: METASTATIC RENAL CELL CARCINOMA
     Dosage: 50 MG, 1X/DAY (CYCLE 4 FOR 2)
     Route: 048
     Dates: start: 20120304

REACTIONS (7)
  - DISEASE PROGRESSION [None]
  - METASTATIC RENAL CELL CARCINOMA [None]
  - DYSSTASIA [None]
  - MUSCULAR WEAKNESS [None]
  - MALAISE [None]
  - PLEURAL EFFUSION [None]
  - ABDOMINAL PAIN [None]
